FAERS Safety Report 17074040 (Version 2)
Quarter: 2021Q4

REPORT INFORMATION
  Report Type: Spontaneous
  Country: US (occurrence: US)
  Receive Date: 20191126
  Receipt Date: 20211008
  Transmission Date: 20220303
  Serious: Yes (Disabling)
  Sender: FDA-Public Use
  Company Number: US-TEVA-2019-US-1141281

PATIENT
  Age: 64 Year
  Sex: Female
  Weight: 71.6 kg

DRUGS (29)
  1. DOCETAXEL [Suspect]
     Active Substance: DOCETAXEL
     Indication: Invasive ductal breast carcinoma
     Dosage: NO OF CYCLES: 06, FREQUENCY: EVERY 3 WEEKS
     Route: 065
     Dates: start: 20140319, end: 20140702
  2. DOCETAXEL [Suspect]
     Active Substance: DOCETAXEL
     Indication: Invasive ductal breast carcinoma
     Dosage: NO OF CYCLES: 06, FREQUENCY: EVERY 3 WEEKS
     Route: 065
     Dates: start: 20140319, end: 20140702
  3. DOCETAXEL [Suspect]
     Active Substance: DOCETAXEL
     Dosage: NO OF CYCLES: 06, FREQUENCY: EVERY 3 WEEKS
     Dates: start: 20140319, end: 20140702
  4. DOCETAXEL [Suspect]
     Active Substance: DOCETAXEL
     Indication: Invasive ductal breast carcinoma
     Dosage: NO OF CYCLES: 06, FREQUENCY: EVERY 3 WEEKS
     Route: 065
     Dates: start: 20140319, end: 20140702
  5. DOCETAXEL [Suspect]
     Active Substance: DOCETAXEL
     Dosage: NO OF CYCLES: 06, FREQUENCY: EVERY 3 WEEKS
     Dates: start: 20140319, end: 20140702
  6. DOCETAXEL [Suspect]
     Active Substance: DOCETAXEL
     Dosage: NO OF CYCLES: 06, FREQUENCY: EVERY 3 WEEKS
     Dates: start: 20140319, end: 20140702
  7. DOCETAXEL [Suspect]
     Active Substance: DOCETAXEL
     Dosage: NO OF CYCLES: 06, FREQUENCY: EVERY 3 WEEKS
     Dates: start: 20140319, end: 20140702
  8. DOCETAXEL [Suspect]
     Active Substance: DOCETAXEL
     Indication: Invasive ductal breast carcinoma
     Dosage: NO OF CYCLES: 06, FREQUENCY: EVERY 3 WEEKS
     Route: 065
     Dates: start: 20140319, end: 20140702
  9. DOCETAXEL [Suspect]
     Active Substance: DOCETAXEL
     Indication: Invasive ductal breast carcinoma
     Dosage: NO OF CYCLES: 06, FREQUENCY: EVERY 3 WEEKS
     Route: 065
     Dates: start: 20140319, end: 20140702
  10. CYTOXAN [Suspect]
     Active Substance: CYCLOPHOSPHAMIDE
     Indication: Invasive ductal breast carcinoma
     Dosage: NO OF CYCLES: 06, FREQUENCY: EVERY 3 WEEKS
     Route: 065
     Dates: start: 20140319, end: 20140702
  11. LIPITOR [Concomitant]
     Active Substance: ATORVASTATIN CALCIUM
     Route: 065
  12. ROSUVASTATIN [Concomitant]
     Active Substance: ROSUVASTATIN
     Dosage: ONGOING
     Dates: start: 2010
  13. LOSARTAN POTASSIUM [Concomitant]
     Active Substance: LOSARTAN POTASSIUM
     Indication: Hypertension
     Dosage: 1 X DAILY, ONGOING
     Route: 048
     Dates: start: 2010
  14. VITAMINS [Concomitant]
     Active Substance: VITAMINS
     Dosage: ONGOING
     Dates: start: 2010
  15. ALENDRONATE SODIUM [Concomitant]
     Active Substance: ALENDRONATE SODIUM
     Indication: Osteoporosis
     Dosage: QWEEK
     Route: 048
  16. MINERALS\VITAMINS [Concomitant]
     Active Substance: MINERALS\VITAMINS
     Dosage: 1 X DAILY
     Route: 048
  17. CLARITIN [Concomitant]
     Active Substance: LORATADINE
     Dosage: 1XDAILY
     Route: 048
  18. FLUTICASONE PROPIONATE [Concomitant]
     Active Substance: FLUTICASONE PROPIONATE
     Dosage: 50 MCG/ACT, DAILY
     Route: 045
  19. TYLENOL [Concomitant]
     Active Substance: ACETAMINOPHEN
     Indication: Arthralgia
     Dosage: Q4HR, PRN
     Route: 048
  20. VITAMIN C [Concomitant]
     Active Substance: ASCORBIC ACID
     Dosage: 1 X DAILY
     Route: 048
  21. CALCIUM [Concomitant]
     Active Substance: CALCIUM
     Route: 065
  22. ACETAMINOPHEN [Concomitant]
     Active Substance: ACETAMINOPHEN
     Indication: Osteoarthritis
     Dosage: DAILY PRN
     Route: 048
  23. ACETAMINOPHEN [Concomitant]
     Active Substance: ACETAMINOPHEN
     Indication: Arthralgia
  24. CALCIUM CITRATE [Concomitant]
     Active Substance: CALCIUM CITRATE
     Route: 048
  25. TRAMADOL HYDROCHLORIDE [Concomitant]
     Active Substance: TRAMADOL HYDROCHLORIDE
     Indication: Osteoarthritis
     Dosage: TWICE DAILY PRN
     Route: 048
  26. AMOXICILLIN [Concomitant]
     Active Substance: AMOXICILLIN
     Indication: Sinusitis bacterial
     Dates: start: 20140312
  27. FERROUS SULFATE [Concomitant]
     Active Substance: FERROUS SULFATE
     Indication: Iron deficiency anaemia
     Dosage: 1 TAB DAILY
     Route: 048
  28. FERROUS GLUCONATE [Concomitant]
     Active Substance: FERROUS GLUCONATE
     Indication: Iron deficiency anaemia
     Dosage: BID
     Route: 065
  29. PRILOSEC [Concomitant]
     Active Substance: OMEPRAZOLE MAGNESIUM
     Indication: Peptic ulcer
     Dosage: 1XDAILY
     Route: 048

REACTIONS (5)
  - Alopecia areata [Not Recovered/Not Resolved]
  - Madarosis [Not Recovered/Not Resolved]
  - Hair texture abnormal [Not Recovered/Not Resolved]
  - Hair colour changes [Not Recovered/Not Resolved]
  - Herpes zoster [Not Recovered/Not Resolved]

NARRATIVE: CASE EVENT DATE: 20140101
